FAERS Safety Report 4860416-6 (Version None)
Quarter: 2005Q4

REPORT INFORMATION
  Report Type: 
  Country: None (occurrence: None)
  Receive Date: 20051215
  Receipt Date: 20051205
  Transmission Date: 20060501
  Serious: Yes (Other)
  Sender: FDA-Public Use
  Company Number: 2005135071

PATIENT
  Sex: Female
  Weight: 68.0396 kg

DRUGS (14)
  1. LIPITOR [Suspect]
     Indication: BLOOD CHOLESTEROL INCREASED
     Dosage: 10 MG (1 MG, 1 IN 1 D),ORAL
     Route: 048
     Dates: start: 19980101
  2. SINEMET [Concomitant]
  3. MIRAPEX [Concomitant]
  4. ASPIRIN [Concomitant]
  5. FOSAMAX (ALENDROANE SODIUM) [Concomitant]
  6. ELDEPRYL (SELEGILINE HYDROHCLORIDE) [Concomitant]
  7. PARLODEL [Concomitant]
  8. COLACE (DOCUSATE SODIUM) [Concomitant]
  9. VITAMIN E [Concomitant]
  10. VITAMIN C (VITAMIN C) [Concomitant]
  11. COENZYME Q10 [Concomitant]
  12. TYLENOL PM (DIPHENHYDRAMINE, PARACETAMOL) [Concomitant]
  13. CALCIUM (CALCIUM) [Concomitant]
  14. SOMEMET-CR (CARBIDOPA, LEVODOPA) [Concomitant]

REACTIONS (4)
  - ADENOCARCINOMA [None]
  - BLOOD TRIGLYCERIDES INCREASED [None]
  - COLON CANCER [None]
  - RECTAL CANCER [None]
